FAERS Safety Report 7293835-1 (Version None)
Quarter: 2011Q1

REPORT INFORMATION
  Report Type: 
  Country: None (occurrence: None)
  Receive Date: 20110203
  Receipt Date: 20110121
  Transmission Date: 20110831
  Serious: Yes (Hospitalization)
  Sender: FDA-Public Use
  Company Number: 025956

PATIENT
  Sex: Female
  Weight: 3 kg

DRUGS (4)
  1. UNKNOWN [Concomitant]
  2. INSULIN [Concomitant]
  3. LAMICTAL [Suspect]
     Indication: EPILEPSY
     Dosage: 250 MG TO 450 MG; TRANSPLACENTAL
     Route: 064
     Dates: end: 20091207
  4. KEPPRA [Suspect]
     Indication: EPILEPSY
     Dosage: 500 MG BID, TRANSPLACENTAL
     Route: 064
     Dates: start: 20091129, end: 20091207

REACTIONS (10)
  - TREMOR NEONATAL [None]
  - HYPERGLYCAEMIA [None]
  - MATERNAL DRUGS AFFECTING FOETUS [None]
  - CAESAREAN SECTION [None]
  - AGITATION NEONATAL [None]
  - PAIN [None]
  - BREECH PRESENTATION [None]
  - PREMATURE BABY [None]
  - CYANOSIS NEONATAL [None]
  - OXYGEN SATURATION DECREASED [None]
